FAERS Safety Report 7705829-X (Version None)
Quarter: 2011Q3

REPORT INFORMATION
  Report Type: 
  Country: None (occurrence: None)
  Receive Date: 20110824
  Receipt Date: 20110815
  Transmission Date: 20111222
  Serious: Yes (Life-Threatening, Hospitalization)
  Sender: FDA-Public Use
  Company Number: US-ELI_LILLY_AND_COMPANY-US201108004945

PATIENT
  Age: 42 Year
  Sex: Female
  Weight: 78.912 kg

DRUGS (7)
  1. TRILEPTAL [Concomitant]
     Indication: DEPRESSION
  2. ZOLOFT [Concomitant]
     Indication: DEPRESSION
  3. ZYPREXA [Suspect]
     Indication: BIPOLAR DISORDER
     Dosage: UNK UNK, UNKNOWN
     Dates: end: 20110101
  4. VISTARIL [Concomitant]
     Indication: DEPRESSION
     Route: 048
  5. LAMICTAL [Concomitant]
     Indication: DEPRESSION
  6. TRAZODONE HCL [Concomitant]
     Indication: DEPRESSION
  7. TRAMADOL HCL [Concomitant]
     Indication: PAIN

REACTIONS (4)
  - INTENTIONAL SELF-INJURY [None]
  - OFF LABEL USE [None]
  - SUICIDE ATTEMPT [None]
  - INTENTIONAL OVERDOSE [None]
